FAERS Safety Report 10243009 (Version 1)
Quarter: 2014Q2

REPORT INFORMATION
  Report Type: Spontaneous
  Country: US (occurrence: US)
  Receive Date: 20140618
  Receipt Date: 20140618
  Transmission Date: 20141212
  Serious: Yes (Other)
  Sender: FDA-Public Use
  Company Number: US-BRISTOL-MYERS SQUIBB COMPANY-20974960

PATIENT
  Age: 79 Year
  Sex: Male
  Weight: 87.07 kg

DRUGS (1)
  1. SUSTIVA [Suspect]

REACTIONS (1)
  - Skin ulcer [Recovering/Resolving]
